FAERS Safety Report 13850213 (Version 1)
Quarter: 2017Q3

REPORT INFORMATION
  Report Type: Spontaneous
  Country: IT (occurrence: IT)
  Receive Date: 20170809
  Receipt Date: 20170809
  Transmission Date: 20171127
  Serious: Yes (Other)
  Sender: FDA-Public Use
  Company Number: IT-BAYER-2017-147402

PATIENT
  Sex: Female

DRUGS (1)
  1. KLAIRA [Suspect]
     Active Substance: DIENOGEST\ETHINYL ESTRADIOL
     Indication: MENOPAUSAL SYMPTOMS
     Route: 048

REACTIONS (5)
  - Sjogren^s syndrome [None]
  - Product use in unapproved indication [None]
  - Off label use [None]
  - Dry mouth [None]
  - Oral mucosal discolouration [None]
